FAERS Safety Report 6306522-0 (Version None)
Quarter: 2009Q3

REPORT INFORMATION
  Report Type: 
  Country: None (occurrence: None)
  Receive Date: 20090812
  Receipt Date: 20090731
  Transmission Date: 20100115
  Serious: Yes (Death)
  Sender: FDA-Public Use
  Company Number: ES-WATSON-2009-06210

PATIENT
  Age: 63 Year
  Sex: Male
  Weight: 85 kg

DRUGS (3)
  1. MONODOX [Suspect]
     Indication: PNEUMONIA MYCOPLASMAL
     Dosage: 100 MG, BID, DAYS 5-10
     Route: 048
  2. NAPROXEN SODIUM [Suspect]
     Indication: PYREXIA
     Dosage: 500 MG, TID, DAYS 7-9
     Route: 048
  3. LEVOFLOXACIN [Suspect]
     Indication: PNEUMONIA MYCOPLASMAL
     Dosage: 500 MG, BID, DAYS 1-4
     Route: 048

REACTIONS (1)
  - ACUTE HEPATIC FAILURE [None]
